FAERS Safety Report 8060237-X (Version None)
Quarter: 2012Q1

REPORT INFORMATION
  Report Type: 
  Country: None (occurrence: None)
  Receive Date: 20120119
  Receipt Date: 20120119
  Transmission Date: 20120608
  Serious: Yes (Hospitalization)
  Sender: FDA-Public Use
  Company Number: None

PATIENT
  Age: 87 Year
  Sex: Male
  Weight: 70.2 kg

DRUGS (11)
  1. GEMFIBROZIL [Concomitant]
  2. ASPIRIN [Suspect]
     Indication: CORONARY ARTERY DISEASE
     Dosage: 81MG DAILY PO CHRONIC
     Route: 048
  3. CYMBALTA [Concomitant]
  4. PRADAXA [Suspect]
     Indication: ATRIAL FIBRILLATION
     Dosage: 150MG BID PO CHRONIC
     Route: 048
  5. FLOMAX [Concomitant]
  6. FINASTERIDE [Concomitant]
  7. GLIPIZIDE [Concomitant]
  8. TORSEMIDE [Concomitant]
  9. SPIRONOLACTONE [Concomitant]
  10. NEXIUM [Concomitant]
  11. CARVEDILOL [Concomitant]

REACTIONS (2)
  - NASAL INFLAMMATION [None]
  - EPISTAXIS [None]
